FAERS Safety Report 22620532 (Version 1)
Quarter: 2023Q2

REPORT INFORMATION
  Report Type: Spontaneous
  Country: US (occurrence: None)
  Receive Date: 20230617
  Receipt Date: 20230617
  Transmission Date: 20230722
  Serious: Yes (Disabling)
  Sender: FDA-Public Use
  Company Number: None

PATIENT
  Age: 44 Year
  Sex: Female
  Weight: 81.9 kg

DRUGS (5)
  1. ADBRY [Suspect]
     Active Substance: TRALOKINUMAB-LDRM
     Indication: Eczema
     Dosage: OTHER QUANTITY : 2 INJECTION(S);?OTHER FREQUENCY : EVERY OTHER WEEK;?
     Route: 058
     Dates: start: 20230511, end: 20230525
  2. MOTRIN [Concomitant]
     Active Substance: IBUPROFEN
  3. FEXOFENADINE [Concomitant]
     Active Substance: FEXOFENADINE HYDROCHLORIDE
  4. ZILRETTA [Concomitant]
     Active Substance: TRIAMCINOLONE ACETONIDE
  5. eltriptapan [Concomitant]

REACTIONS (8)
  - Arthralgia [None]
  - Peripheral swelling [None]
  - Arthralgia [None]
  - Arthralgia [None]
  - Joint swelling [None]
  - Arthralgia [None]
  - Pain [None]
  - Arthralgia [None]

NARRATIVE: CASE EVENT DATE: 20230515
